FAERS Safety Report 7777265 (Version 5)
Quarter: 2013Q3

REPORT INFORMATION
  Report Type: Spontaneous
  Country: US (occurrence: None)
  Receive Date: 20101230
  Receipt Date: 20130903
  Transmission Date: 20140515
  Serious: Yes (Hospitalization, Other)
  Sender: FDA-Public Use
  Company Number: ACO_20981_2010

PATIENT
  Age: 39 Year
  Sex: Female

DRUGS (17)
  1. AMPYRA (DALFAMPRIDINE) [Suspect]
     Indication: GAIT DISTURBANCE
     Dosage: 10MG; BID, ORAL
     Route: 048
     Dates: start: 20100825, end: 20101208
  2. AMPYRA (DALFAMPRIDINE) [Suspect]
  3. AMPYRA (DALFAMPRIDINE) [Suspect]
  4. COPAXONE [Concomitant]
  5. LYRICA [Concomitant]
  6. DETROL LA [Concomitant]
  7. BACLOFEN [Concomitant]
  8. PROVIGIL [Concomitant]
  9. OMEPRAZOLE [Concomitant]
  10. CHROMAGEN FA [Concomitant]
  11. DOMPERIDONE [Concomitant]
  12. CENTRUM [Concomitant]
  13. VITAMIN C [Concomitant]
  14. ERGOCALCIFEROL [Concomitant]
  15. CALCIUM CARBONATE [Concomitant]
  16. FOLIC ACID [Concomitant]
  17. FLORINEF ACETATE [Concomitant]

REACTIONS (12)
  - Orthostatic hypotension [None]
  - Syncope [None]
  - Loss of consciousness [None]
  - Fatigue [None]
  - Asthenia [None]
  - Dizziness [None]
  - Foot fracture [None]
  - Fall [None]
  - Urinary tract infection [None]
  - Hypoaesthesia [None]
  - Endometriosis [None]
  - Scar [None]
